FAERS Safety Report 4772242-7 (Version None)
Quarter: 2005Q3

REPORT INFORMATION
  Report Type: 
  Country: None (occurrence: None)
  Receive Date: 20050919
  Receipt Date: 20050329
  Transmission Date: 20060218
  Serious: Yes (Hospitalization)
  Sender: FDA-Public Use
  Company Number: US-BRISTOL-MYERS SQUIBB COMPANY-12915476

PATIENT
  Age: 60 Year
  Sex: Male

DRUGS (19)
  1. DEFINITY [Suspect]
     Indication: ECHOCARDIOGRAM
     Route: 040
     Dates: start: 20050328
  2. TRICOR [Concomitant]
  3. NEURONTIN [Concomitant]
  4. ADVAIR DISKUS 100/50 [Concomitant]
  5. HEPARIN [Concomitant]
  6. LASIX [Concomitant]
     Route: 042
  7. CARVEDILOL [Concomitant]
  8. AMLODIPINE [Concomitant]
  9. ALDACTONE [Concomitant]
  10. IRON [Concomitant]
  11. COMBIVENT [Concomitant]
  12. BENADRYL [Concomitant]
  13. MUCOMYST [Concomitant]
  14. LISINOPRIL [Concomitant]
  15. CIPRO [Concomitant]
  16. ASPIRIN [Concomitant]
  17. COLACE [Concomitant]
  18. LIPITOR [Concomitant]
  19. DIGOXIN [Concomitant]

REACTIONS (4)
  - DYSPNOEA [None]
  - FLUSHING [None]
  - HYPOTENSION [None]
  - RESPIRATORY DISTRESS [None]
